FAERS Safety Report 5650678-X (Version None)
Quarter: 2008Q1

REPORT INFORMATION
  Report Type: 
  Country: None (occurrence: None)
  Receive Date: 20080305
  Receipt Date: 20080305
  Transmission Date: 20080703
  Serious: Yes (Death)
  Sender: FDA-Public Use
  Company Number: None

PATIENT
  Age: 73 Year
  Sex: Female
  Weight: 71 kg

DRUGS (1)
  1. HEPARIN [Suspect]
     Dosage: 5000 UNITS Q8/HOUR SUBCUT
     Route: 058
     Dates: start: 20071216, end: 20071220

REACTIONS (17)
  - ABDOMINAL PAIN [None]
  - ANAEMIA [None]
  - ANOXIC ENCEPHALOPATHY [None]
  - BLOOD PRESSURE DECREASED [None]
  - BRONCHITIS [None]
  - CARDIAC ARREST [None]
  - CHEST DISCOMFORT [None]
  - CONTUSION [None]
  - DIASTOLIC DYSFUNCTION [None]
  - HYPERKALAEMIA [None]
  - HYPOPERFUSION [None]
  - INCOHERENT [None]
  - INTERNATIONAL NORMALISED RATIO INCREASED [None]
  - INTRA-ABDOMINAL HAEMATOMA [None]
  - LACTIC ACIDOSIS [None]
  - LETHARGY [None]
  - RENAL FAILURE ACUTE [None]
